FAERS Safety Report 4609027-8 (Version None)
Quarter: 2005Q1

REPORT INFORMATION
  Report Type: 
  Country: None (occurrence: None)
  Receive Date: 20050311
  Receipt Date: 20041115
  Transmission Date: 20050727
  Serious: Yes (Hospitalization, Other)
  Sender: FDA-Public Use
  Company Number: 2005009372

PATIENT
  Sex: Female

DRUGS (2)
  1. BEXTRA [Suspect]
     Indication: ILL-DEFINED DISORDER
     Dates: start: 20041012
  2. ROFECOXIB [Concomitant]

REACTIONS (3)
  - DRUG INEFFECTIVE [None]
  - POST PROCEDURAL PAIN [None]
  - ROTATOR CUFF REPAIR [None]
